FAERS Safety Report 16358139 (Version 2)
Quarter: 2019Q2

REPORT INFORMATION
  Report Type: Spontaneous
  Country: JP (occurrence: JP)
  Receive Date: 20190527
  Receipt Date: 20190531
  Transmission Date: 20190711
  Serious: Yes (Life-Threatening)
  Sender: FDA-Public Use
  Company Number: JP-PFIZER INC-2019222786

PATIENT
  Age: 82 Year
  Sex: Male
  Weight: 65 kg

DRUGS (10)
  1. BIOFERMIN [LACTOMIN] [Concomitant]
     Dosage: UNK
     Route: 065
     Dates: start: 20190430, end: 20190502
  2. FOSTOIN [Suspect]
     Active Substance: FOSPHENYTOIN SODIUM
     Indication: STATUS EPILEPTICUS
     Dosage: 20 ML, 1X/DAY (750 MG 2 BOTTLES + NS 100 ML WERE ADMINISTERED FOR 20 MINUTES)
     Route: 042
     Dates: start: 20190502, end: 20190502
  3. PICOSULFATE NA [Concomitant]
     Active Substance: SODIUM PICOSULFATE
     Dosage: UNK
     Route: 065
     Dates: start: 20190502, end: 20190502
  4. E KEPPRA [Concomitant]
     Active Substance: LEVETIRACETAM
     Indication: STATUS EPILEPTICUS
     Dosage: 5 ML, 1X/DAY (500 MG + NS 100 ML ADMINISTRATION FOR 15 MINUTES)
     Route: 042
     Dates: start: 20190502, end: 20190502
  5. EPADEL-S [Concomitant]
     Active Substance: ICOSAPENT ETHYL
     Dosage: UNK
     Route: 065
     Dates: start: 20190430, end: 20190430
  6. SYMMETREL [Concomitant]
     Active Substance: AMANTADINE HYDROCHLORIDE
     Dosage: UNK
     Route: 065
     Dates: start: 20190430, end: 20190502
  7. PRAVASTATIN NA [Concomitant]
     Active Substance: PRAVASTATIN SODIUM
     Dosage: UNK
     Route: 065
     Dates: start: 20190501, end: 20190502
  8. TAKEPRON [Concomitant]
     Active Substance: LANSOPRAZOLE
     Dosage: UNK
     Route: 065
     Dates: start: 20190501, end: 20190502
  9. RIVOTRIL [Concomitant]
     Active Substance: CLONAZEPAM
     Dosage: UNK
     Route: 065
     Dates: start: 20190430, end: 20190502
  10. AROTINOLOL HYDROCHLORIDE [Concomitant]
     Active Substance: AROTINOLOL HYDROCHLORIDE
     Dosage: UNK
     Route: 065
     Dates: start: 20190430, end: 20190502

REACTIONS (3)
  - Vomiting [Recovered/Resolved]
  - Cardiac arrest [Recovered/Resolved]
  - Blood pressure decreased [Recovered/Resolved]

NARRATIVE: CASE EVENT DATE: 20190503
